FAERS Safety Report 7042483-7 (Version None)
Quarter: 2010Q4

REPORT INFORMATION
  Report Type: 
  Country: None (occurrence: None)
  Receive Date: 20101013
  Receipt Date: 20100526
  Transmission Date: 20110411
  Serious: No
  Sender: FDA-Public Use
  Company Number: US-ASTRAZENECA-2010SE24396

PATIENT
  Sex: Female

DRUGS (1)
  1. SYMBICORT [Suspect]
     Route: 055
     Dates: start: 20100505

REACTIONS (1)
  - ORAL FUNGAL INFECTION [None]
